FAERS Safety Report 6387788-8 (Version None)
Quarter: 2009Q4

REPORT INFORMATION
  Report Type: 
  Country: None (occurrence: None)
  Receive Date: 20091005
  Receipt Date: 20090929
  Transmission Date: 20100525
  Serious: Yes (Hospitalization)
  Sender: FDA-Public Use
  Company Number: FR-BRISTOL-MYERS SQUIBB COMPANY-14800809

PATIENT
  Age: 54 Year
  Sex: Male

DRUGS (5)
  1. AMIKLIN INJ [Suspect]
     Indication: PYREXIA
     Route: 042
     Dates: start: 20080809, end: 20080814
  2. TIENAM [Suspect]
     Indication: PYREXIA
     Route: 042
     Dates: start: 20080809, end: 20080820
  3. CAMPTOSAR [Concomitant]
     Indication: COLORECTAL CANCER METASTATIC
     Dosage: CONCENTRATE SOLN FOR INF
     Route: 042
     Dates: start: 20080724, end: 20080724
  4. FLUOROURACIL [Concomitant]
     Indication: COLORECTAL CANCER METASTATIC
     Route: 042
     Dates: start: 20080724, end: 20080726
  5. AVASTIN [Concomitant]
     Indication: COLORECTAL CANCER METASTATIC
     Route: 042
     Dates: start: 20080724, end: 20080724

REACTIONS (1)
  - FISTULA [None]
